FAERS Safety Report 25240141 (Version 1)
Quarter: 2025Q2

REPORT INFORMATION
  Report Type: Spontaneous
  Country: US (occurrence: None)
  Receive Date: 20250425
  Receipt Date: 20250425
  Transmission Date: 20250717
  Serious: No
  Sender: FDA-CTU
  Company Number: None

PATIENT
  Age: 88 Year
  Sex: Female
  Weight: 48.6 kg

DRUGS (8)
  1. BRIMONIDINE [Suspect]
     Active Substance: BRIMONIDINE TARTRATE
     Indication: Glaucoma
     Dosage: 1 DROP(S) 3 TIMES A A DAY OPHTHALMIC?
     Route: 047
  2. ELIQUIS [Concomitant]
     Active Substance: APIXABAN
  3. metorolol [Concomitant]
  4. PULMICORT TURBUHALER [Concomitant]
     Active Substance: BUDESONIDE
  5. LEVALBUTEROL [Concomitant]
     Active Substance: LEVALBUTEROL
  6. AMBIEN [Concomitant]
     Active Substance: ZOLPIDEM TARTRATE
  7. ared [Concomitant]
  8. MELATONIN [Concomitant]
     Active Substance: MELATONIN

REACTIONS (13)
  - Vision blurred [None]
  - Eye pruritus [None]
  - Photophobia [None]
  - Ocular hyperaemia [None]
  - Eye swelling [None]
  - Eyelid pain [None]
  - Visual impairment [None]
  - Foreign body sensation in eyes [None]
  - Dizziness postural [None]
  - Depression [None]
  - Myalgia [None]
  - Eyelids pruritus [None]
  - Fatigue [None]

NARRATIVE: CASE EVENT DATE: 20250215
